FAERS Safety Report 6199565-1 (Version None)
Quarter: 2009Q2

REPORT INFORMATION
  Report Type: 
  Country: None (occurrence: None)
  Receive Date: 20090522
  Receipt Date: 20090513
  Transmission Date: 20091009
  Serious: Yes (Hospitalization)
  Sender: FDA-Public Use
  Company Number: B0563112A

PATIENT
  Sex: Male
  Weight: 90 kg

DRUGS (2)
  1. ARIXTRA [Suspect]
     Indication: VENOUS THROMBOSIS
     Dosage: 7.5MG PER DAY
     Route: 058
     Dates: start: 20081125, end: 20081215
  2. PREVISCAN [Suspect]
     Indication: VENOUS THROMBOSIS
     Dosage: 1TAB PER DAY
     Route: 048
     Dates: start: 20081129, end: 20090107

REACTIONS (7)
  - ANAEMIA [None]
  - ANOREXIA [None]
  - CHOLESTASIS [None]
  - HEPATOTOXICITY [None]
  - INCORRECT DRUG ADMINISTRATION DURATION [None]
  - PRURITUS [None]
  - TRANSAMINASES INCREASED [None]
